FAERS Safety Report 7048823-7 (Version None)
Quarter: 2010Q4

REPORT INFORMATION
  Report Type: 
  Country: None (occurrence: None)
  Receive Date: 20101018
  Receipt Date: 20101013
  Transmission Date: 20110411
  Serious: Yes (Death)
  Sender: FDA-Public Use
  Company Number: PHHY2010NL68488

PATIENT
  Sex: Male

DRUGS (2)
  1. ZOMETA [Suspect]
     Indication: LUNG CANCER METASTATIC
     Dosage: 4 MG/5ML, UNK
     Dates: start: 20100827
  2. ZOMETA [Suspect]
     Dosage: 4 MG/5ML, UNK
     Dates: start: 20100928

REACTIONS (1)
  - MALIGNANT NEOPLASM PROGRESSION [None]
